FAERS Safety Report 15656674 (Version 1)
Quarter: 2018Q4

REPORT INFORMATION
  Report Type: Report from Study
  Country: US (occurrence: US)
  Receive Date: 20181126
  Receipt Date: 20181126
  Transmission Date: 20190205
  Serious: Yes (Hospitalization)
  Sender: FDA-Public Use
  Company Number: US-SAKK-2018SA317674AA

PATIENT
  Age: 59 Year
  Sex: Female

DRUGS (1)
  1. INSULIN GLARGINE [Suspect]
     Active Substance: INSULIN GLARGINE
     Dosage: 20 U
     Dates: start: 20100120

REACTIONS (5)
  - Muscular weakness [Unknown]
  - Blood glucose increased [Unknown]
  - Feeling abnormal [Unknown]
  - Dehydration [Unknown]
  - Muscle spasms [Unknown]
